FAERS Safety Report 8912725 (Version 3)
Quarter: 2013Q3

REPORT INFORMATION
  Report Type: Report from Study
  Country: JP (occurrence: JP)
  Receive Date: 20121116
  Receipt Date: 20130904
  Transmission Date: 20140515
  Serious: Yes (Hospitalization, Other)
  Sender: FDA-Public Use
  Company Number: JP-VERTEX PHARMACEUTICAL INC.-AE-2012-003270

PATIENT
  Age: 64 Year
  Sex: Female

DRUGS (10)
  1. VX-950 (TELAPREVIR) [Suspect]
     Indication: CHRONIC HEPATITIS C
     Dosage: 2250 MG, QD
     Route: 048
     Dates: start: 20120106, end: 20120126
  2. VX-950 (TELAPREVIR) [Suspect]
     Dosage: 1500 MG, QD
     Route: 048
     Dates: start: 20120127, end: 20120330
  3. PEGINTRON [Suspect]
     Indication: CHRONIC HEPATITIS C
     Dosage: 1.6 ?G/KG, WEEKLY
     Route: 058
     Dates: start: 20120106, end: 20120112
  4. PEGINTRON [Suspect]
     Dosage: 1.0 ?G/KG, WEEKLY
     Route: 058
     Dates: start: 20120113, end: 20120615
  5. REBETOL [Suspect]
     Indication: CHRONIC HEPATITIS C
     Dosage: 600 MG, QD
     Route: 048
     Dates: start: 20120106, end: 20120126
  6. REBETOL [Suspect]
     Dosage: 400 MG, QD
     Route: 048
     Dates: start: 20120127, end: 20120202
  7. REBETOL [Suspect]
     Dosage: 200 MG, QD
     Route: 048
     Dates: start: 20120203, end: 20120614
  8. DOGMATYL [Suspect]
     Indication: ADVERSE EVENT
     Dosage: 150 MG, QD
     Route: 048
     Dates: start: 20120120, end: 20120412
  9. DOMPERIDONE [Suspect]
     Indication: ADVERSE EVENT
     Dosage: 30 MG, QD
     Route: 048
     Dates: start: 20120113, end: 20120405
  10. LOXOPROFEN [Concomitant]
     Dosage: 60 MG, PRN
     Route: 048
     Dates: start: 20120106, end: 20120209

REACTIONS (3)
  - White blood cell count decreased [Recovered/Resolved]
  - Decreased appetite [Recovered/Resolved]
  - Parkinsonism [Recovered/Resolved]
